FAERS Safety Report 9399411 (Version 3)
Quarter: 2014Q2

REPORT INFORMATION
  Report Type: Spontaneous
  Country: JP (occurrence: None)
  Receive Date: 20130710
  Receipt Date: 20140512
  Transmission Date: 20141212
  Serious: Yes (Death)
  Sender: FDA-Public Use
  Company Number: SYM-2013-05358

PATIENT
  Age: 70 Year
  Sex: Male

DRUGS (21)
  1. FLUOROURACIL [Suspect]
     Indication: HEAD AND NECK CANCER
     Route: 042
     Dates: start: 20121012, end: 20121015
  2. CISPLATIN [Suspect]
     Indication: HEAD AND NECK CANCER
     Dosage: EVERY CYCLE
     Route: 042
     Dates: start: 20121012, end: 20121012
  3. ONETAXOTERE [Suspect]
     Indication: HEAD AND NECK CANCER
     Dosage: EVERY CYCLE
     Route: 042
     Dates: start: 20121012, end: 20121012
  4. TS-1 [Suspect]
     Indication: HEAD AND NECK CANCER
     Route: 048
     Dates: start: 20120528, end: 20120921
  5. PRIMPERAN (METOCLOPRAMIDE HYDROCHLORIDE) (METOCLOPRAMIDE HYDROCHLORIDE) [Concomitant]
  6. ALOXI (PALOOSETRON HYDROCHLORIDE) (PALONOSETRON HYDROCHLORIDE) [Concomitant]
  7. EMEND (APREPITANT) (APREPITANT) [Concomitant]
  8. DEXART (DEXAMETHASONE SODIUM PHOSPHATE) (DEXAMETHASONE SODIUM PHOSPHATE) [Concomitant]
  9. LOXOPROFEN (LOXOPROFEN) [Concomitant]
  10. MIYA-BM (CLOSTRIDUM BUTYRICUM) (CLOSTRIDIUM BUTYRICUM) [Concomitant]
  11. LAC B (BIFIDOBACTERIUM BIFIDUM) (BIFIDOBACTERIUM BIFIDUM) [Concomitant]
  12. MUCOSTA (REBAMIPIDE) (REBAMIPIDE) [Concomitant]
  13. MUCODYNE (CARBOCISTEINE) (CARBOCISTEINE) [Concomitant]
  14. KLARICID (CLARITHROMYCI) (CLARITHROMYCIN) [Concomitant]
  15. SALAGEN (PILOCARPINE HYDROCHLORIDE) (PILOCARPINE) [Concomitant]
  16. PARIET (RABEPRAZOLE SODIUM) (RABEPRAZOLE SODIUM) [Concomitant]
  17. OXYCONTIN (OXYCONDONE HYDROCHLORIDE) (OXYCODONE HYDROCHLORIDE) [Concomitant]
  18. OXINORM (ORGOTEIN) (ORGOTEIN) [Concomitant]
  19. LASIX (FUROSEMIDE) (FUROSEMIDE) [Concomitant]
  20. PICIBANIL (PICIBANIL) (PICIBANIL) [Concomitant]
  21. XYLOCAINE (LIDOCAINE HYDROCHLORIDE) (LIDOCAINE HYDROCHLORIDE) [Concomitant]

REACTIONS (24)
  - Necrotising colitis [None]
  - Sepsis [None]
  - Disseminated intravascular coagulation [None]
  - Shock [None]
  - Staphylococcus test positive [None]
  - Citrobacter test positive [None]
  - Escherichia test positive [None]
  - Klebsiella test positive [None]
  - Candida test positive [None]
  - Bacillus test positive [None]
  - Enterococcus test positive [None]
  - Emphysema [None]
  - Vascular calcification [None]
  - Pleural effusion [None]
  - Ascites [None]
  - Depressed level of consciousness [None]
  - Colitis ischaemic [None]
  - Febrile neutropenia [None]
  - White blood cell count decreased [None]
  - Platelet count decreased [None]
  - Restlessness [None]
  - Loss of consciousness [None]
  - Abdominal pain [None]
  - Off label use [None]
